FAERS Safety Report 12779742 (Version 1)
Quarter: 2016Q3

REPORT INFORMATION
  Report Type: Spontaneous
  Country: US (occurrence: US)
  Receive Date: 20160924
  Receipt Date: 20160924
  Transmission Date: 20161109
  Serious: Yes (Disabling, Other)
  Sender: FDA-Public Use
  Company Number: None

PATIENT
  Age: 31 Year
  Sex: Female
  Weight: 63.9 kg

DRUGS (1)
  1. FLUOROQUINOLONE [Suspect]
     Active Substance: UNSPECIFIED INGREDIENT
     Indication: URINARY TRACT INFECTION
     Route: 048
     Dates: start: 20140130, end: 20140130

REACTIONS (5)
  - Muscular weakness [None]
  - Skin burning sensation [None]
  - Hypoaesthesia [None]
  - Nerve injury [None]
  - Pruritus generalised [None]

NARRATIVE: CASE EVENT DATE: 20140210
